FAERS Safety Report 6388631-3 (Version None)
Quarter: 2009Q4

REPORT INFORMATION
  Report Type: 
  Country: None (occurrence: None)
  Receive Date: 20091005
  Receipt Date: 20090923
  Transmission Date: 20100525
  Serious: Yes (Other)
  Sender: FDA-Public Use
  Company Number: BR-PFIZER INC-2009273126

PATIENT
  Age: 66 Year

DRUGS (8)
  1. LIPITOR [Suspect]
     Indication: BLOOD CHOLESTEROL INCREASED
     Dosage: 40 MG, 1X/DAY
     Route: 048
  2. SIMVASTATINE PFIZER [Suspect]
  3. AAS [Suspect]
     Dosage: UNK
  4. ENALAPRIL [Concomitant]
     Dosage: UNK
  5. AMLODIPINE BESILATE [Concomitant]
     Dosage: UNK
  6. ISOSORBIDE DINITRATE [Concomitant]
     Dosage: UNK
  7. HYDROCHLOROTHIAZIDE [Concomitant]
     Dosage: UNK
  8. OMEPRAZOLE [Concomitant]
     Dosage: UNK

REACTIONS (5)
  - ARTERIAL REPAIR [None]
  - DRUG INEFFECTIVE [None]
  - NAUSEA [None]
  - PAIN IN EXTREMITY [None]
  - POOR QUALITY DRUG ADMINISTERED [None]
